FAERS Safety Report 5151880-6 (Version None)
Quarter: 2006Q4

REPORT INFORMATION
  Report Type: 
  Country: None (occurrence: None)
  Receive Date: 20061109
  Receipt Date: 20061027
  Transmission Date: 20070319
  Serious: Yes (Life-Threatening)
  Sender: FDA-Public Use
  Company Number: 2006129991

PATIENT
  Age: 30 Year
  Sex: Female
  Weight: 55 kg

DRUGS (1)
  1. SULFASALAZINE [Suspect]
     Indication: PUSTULAR PSORIASIS
     Dosage: 200 MG (500 MG, 2 IN 1 D), ORAL
     Route: 048

REACTIONS (6)
  - DRUG EXPOSURE DURING PREGNANCY [None]
  - INTRA-UTERINE DEATH [None]
  - PLACENTAL INSUFFICIENCY [None]
  - PREGNANCY [None]
  - PROLONGED PREGNANCY [None]
  - STILLBIRTH [None]
